FAERS Safety Report 8165231-6 (Version None)
Quarter: 2012Q1

REPORT INFORMATION
  Report Type: 
  Country: None (occurrence: None)
  Receive Date: 20120227
  Receipt Date: 20120217
  Transmission Date: 20120608
  Serious: Yes (Hospitalization)
  Sender: FDA-Public Use
  Company Number: US-GE HEALTHCARE MEDICAL DIAGNOSTICS-OMPQ-PR-1112L-2154

PATIENT

DRUGS (3)
  1. OMNIPAQUE 140 [Suspect]
     Indication: PRODUCT USED FOR UNKNOWN INDICATION
     Route: 013
  2. OMNIPAQUE 140 [Suspect]
     Indication: DIAGNOSTIC PROCEDURE
  3. FUROSEMIDE [Suspect]
     Indication: OLIGURIA
     Dosage: MAX. 2.0 MG/KG
     Route: 042

REACTIONS (1)
  - HYPOKALAEMIA [None]
